FAERS Safety Report 4765951-7 (Version None)
Quarter: 2005Q3

REPORT INFORMATION
  Report Type: 
  Country: None (occurrence: None)
  Receive Date: 20050908
  Receipt Date: 20050908
  Transmission Date: 20060218
  Serious: Yes (Hospitalization)
  Sender: FDA-Public Use
  Company Number: None

PATIENT
  Age: 52 Year
  Sex: Female
  Weight: 44.9 kg

DRUGS (6)
  1. PHENYTOIN [Suspect]
     Indication: CONVULSION
     Dosage: LAST KNOWN 200 QID [ CHRONIC]
  2. TRAZODONE [Suspect]
     Indication: DEPRESSION
     Dosage: [CHRONIC]
  3. PAXIL [Concomitant]
  4. TYLENOL [Concomitant]
  5. BUSPAR [Concomitant]
  6. ALBUTEROL [Concomitant]

REACTIONS (10)
  - ABDOMINAL PAIN [None]
  - APLASTIC ANAEMIA [None]
  - BONE MARROW DEPRESSION [None]
  - CONSTIPATION [None]
  - DRUG TOXICITY [None]
  - LEUKOPENIA [None]
  - NEUTROPENIA [None]
  - POLLAKIURIA [None]
  - VITAMIN B12 DEFICIENCY [None]
  - WHITE BLOOD CELL COUNT DECREASED [None]
